FAERS Safety Report 6058342-2 (Version None)
Quarter: 2009Q1

REPORT INFORMATION
  Report Type: 
  Country: None (occurrence: None)
  Receive Date: 20090130
  Receipt Date: 20090126
  Transmission Date: 20090719
  Serious: Yes (Hospitalization)
  Sender: FDA-Public Use
  Company Number: US-BRISTOL-MYERS SQUIBB COMPANY-14462840

PATIENT
  Age: 70 Year
  Sex: Female

DRUGS (9)
  1. COUMADIN [Suspect]
     Indication: PROPHYLAXIS
     Dosage: INCREASED :10MG PO EVERY NIGHT REDEUCED: 7.5MG
     Route: 048
     Dates: start: 19970301, end: 20081202
  2. PREMARIN [Concomitant]
  3. XOPENEX [Concomitant]
  4. TOPROL-XL [Concomitant]
  5. NORVASC [Concomitant]
  6. PAXIL [Concomitant]
  7. NEXIUM [Concomitant]
  8. IPRATROPIUM BROMIDE [Concomitant]
  9. RANITIDINE [Concomitant]

REACTIONS (1)
  - PULMONARY EMBOLISM [None]
